FAERS Safety Report 8322454-0 (Version None)
Quarter: 2012Q2

REPORT INFORMATION
  Report Type: 
  Country: None (occurrence: None)
  Receive Date: 20120430
  Receipt Date: 20120416
  Transmission Date: 20120825
  Serious: Yes (Hospitalization)
  Sender: FDA-Public Use
  Company Number: FR-ROCHE-645524

PATIENT
  Sex: Female
  Weight: 25.1 kg

DRUGS (23)
  1. IFOSFAMIDE [Suspect]
     Indication: SARCOMA
     Dosage: DOSE FORM: 6 G/M2
     Route: 042
     Dates: start: 20090605, end: 20090629
  2. VINCRISTINE [Suspect]
     Dosage: DOSE FORM: 1.5MG/M2
     Route: 042
  3. AVASTIN [Suspect]
     Indication: SARCOMA
     Dosage: DOSE FORM: 7.5 MG/KG
     Route: 042
  4. AVASTIN [Suspect]
     Dosage: DOSAGE FORM: 7.5 MG/KG, LAST DOSE PRIOR TO SAE: 19 AUG 2009
     Route: 042
  5. DACTINOMYCIN [Suspect]
     Dosage: DOSAGE FORM: 1.5MG/M2
     Route: 042
  6. DOXORUBICIN HCL [Suspect]
     Dosage: DOSAGE FORM: 60 MG/M2
     Route: 042
  7. IFOSFAMIDE [Suspect]
     Dosage: DOSAGE FORM: 6G/M2, DATE OF LAST DOSE PRIOR TO SAE: 29 SEPTEMBER 2009.
     Route: 042
  8. VINCRISTINE [Suspect]
     Dosage: DOSE FORM: 1.5MG/M2, LAST DOSE PRIOR TO SAE: 29 SEPTEMBER 2009
     Route: 042
  9. ATARAX [Concomitant]
     Dosage: REPORTED AS: ATAXAX (IF NECESSARY). TOTAL DAILY DOSE: 25 MG X 2
  10. AVASTIN [Suspect]
     Dosage: DOSAGE FORM: 7.5 MG/KG
     Route: 042
     Dates: start: 20090623, end: 20090721
  11. DACTINOMYCIN [Suspect]
     Dosage: DOSAGE FORM: 1.5MG/M2
     Route: 042
  12. VINCRISTINE [Suspect]
     Dosage: DOSE FORM: 1.5MG/M2, LAST DOSE PRIOR TO SAE: 19 JULY 2009, ROUTE: IVD
     Route: 042
  13. DACTINOMYCIN [Suspect]
     Dosage: DOSAGE FORM: 1.5MG/M2, ROUTE: IVD
     Route: 042
  14. IFOSFAMIDE [Suspect]
     Dosage: DOSAGE FORM: 6G/M2
     Route: 042
  15. AVASTIN [Suspect]
     Dosage: DOSAGE FORM: 7.5 MG/KG
     Route: 042
  16. DACTINOMYCIN [Suspect]
     Indication: SARCOMA
     Dosage: DOSE FORM: 1.5 MG/M2
     Route: 042
  17. VINCRISTINE [Suspect]
     Indication: SARCOMA
     Dosage: DOSE FORM: 1.5 MG/M2
     Route: 042
  18. DOXORUBICIN HCL [Suspect]
     Indication: SARCOMA
     Dosage: DOSAGE FORM: 60 MG/M2
     Route: 042
     Dates: start: 20090605, end: 20090629
  19. BACTRIM [Concomitant]
     Dosage: TOTAL DAILY DOSE: 3 X 860 MG/WEEK.
  20. AVASTIN [Suspect]
     Dosage: DOSAGE FORM: 7.5 MG/KG, LAST DOSE PRIOR TO SAE: 29 SEPTEMBER 2009.
     Route: 042
  21. OMEPRAZOLE [Concomitant]
  22. FLUCONAZOLE [Concomitant]
     Dates: start: 20090804, end: 20090824
  23. ACETAMINOPHEN [Concomitant]
     Dosage: REPORTED AS PARACETAMOL (IF NECESSARY). TOTAL DAILY DOSE: 300 MG X 4.

REACTIONS (1)
  - FEBRILE BONE MARROW APLASIA [None]
